FAERS Safety Report 6972967-9 (Version None)
Quarter: 2010Q3

REPORT INFORMATION
  Report Type: 
  Country: None (occurrence: None)
  Receive Date: 20100909
  Receipt Date: 20100722
  Transmission Date: 20110219
  Serious: No
  Sender: FDA-Public Use
  Company Number: US-KINGPHARMUSA00001-K201000929

PATIENT
  Age: 53 Year
  Sex: Female
  Weight: 61.224 kg

DRUGS (8)
  1. EMBEDA [Suspect]
     Indication: BACK PAIN
     Dosage: 20 MG, QHS
     Route: 048
     Dates: start: 20100627
  2. EMBEDA [Suspect]
     Indication: NECK PAIN
     Dosage: 20 MG, QHS
     Route: 048
     Dates: start: 20100722
  3. EMBEDA [Suspect]
     Indication: INTERVERTEBRAL DISC PROTRUSION
  4. EMBEDA [Suspect]
     Indication: NERVE COMPRESSION
  5. IMITREX [Concomitant]
     Indication: MIGRAINE
     Dosage: 100 MG,QD TO BID, PRN
     Route: 048
  6. IBUPROFEN [Concomitant]
     Dosage: UNK
     Route: 048
  7. VICODIN [Concomitant]
     Indication: MIGRAINE
     Dosage: .5 DF, PRN
     Route: 048
  8. ACETAMINOPHEN [Concomitant]
     Dosage: UNK
     Route: 048

REACTIONS (4)
  - HEADACHE [None]
  - MIDDLE INSOMNIA [None]
  - MIGRAINE [None]
  - MUSCULOSKELETAL STIFFNESS [None]
